FAERS Safety Report 8586192-1 (Version None)
Quarter: 2012Q3

REPORT INFORMATION
  Report Type: 
  Country: None (occurrence: None)
  Receive Date: 20120810
  Receipt Date: 20120731
  Transmission Date: 20120928
  Serious: Yes (Death)
  Sender: FDA-Public Use
  Company Number: US-GLAXOSMITHKLINE-B0821216A

PATIENT

DRUGS (9)
  1. BUSULFAN [Suspect]
     Indication: PRODUCT USED FOR UNKNOWN INDICATION
     Route: 042
  2. MELPHALAN HYDROCHLORIDE [Suspect]
     Indication: PRODUCT USED FOR UNKNOWN INDICATION
     Dosage: 60MGM2 PER DAY
     Route: 042
  3. PHENYTOIN [Suspect]
     Indication: PRODUCT USED FOR UNKNOWN INDICATION
     Dosage: 600MG PER DAY
     Route: 048
  4. GRANULOCYTE MACROPHAGE COLONY STIMULATING FACTOR [Suspect]
     Indication: PRODUCT USED FOR UNKNOWN INDICATION
     Dosage: 5MCK PER DAY
     Route: 058
  5. GLUTAMINE [Suspect]
     Indication: PRODUCT USED FOR UNKNOWN INDICATION
     Dosage: 15G FOUR TIMES PER DAY
     Route: 065
  6. CRYOTHERAPY [Suspect]
     Indication: PRODUCT USED FOR UNKNOWN INDICATION
     Route: 048
  7. ARTIFICIAL SALIVA [Suspect]
     Indication: PROPHYLAXIS
     Dosage: 30ML FOUR TIMES PER DAY
     Route: 048
  8. PALIFERMIN [Suspect]
     Indication: PROPHYLAXIS
     Dosage: 60MCK PER DAY
  9. GEMCITABINE HYDROCHLORIDE [Suspect]
     Indication: PRODUCT USED FOR UNKNOWN INDICATION
     Route: 042

REACTIONS (3)
  - SEPSIS [None]
  - MUCOSAL INFLAMMATION [None]
  - CANDIDIASIS [None]
